FAERS Safety Report 12219965 (Version 3)
Quarter: 2016Q4

REPORT INFORMATION
  Report Type: Report from Study
  Country: US (occurrence: US)
  Receive Date: 20160330
  Receipt Date: 20161116
  Transmission Date: 20170207
  Serious: No
  Sender: FDA-Public Use
  Company Number: PHEH2016US007409

PATIENT
  Age: 97 Year
  Sex: Female

DRUGS (2)
  1. ENTRESTO [Suspect]
     Active Substance: SACUBITRIL\VALSARTAN
     Indication: CARDIAC FAILURE
     Dosage: 100 MG (49/51 MG), BID
     Route: 048
  2. INFLUENZA VIRUS VACC SEASONAL INN [Suspect]
     Active Substance: INFLUENZA VIRUS VACCINE
     Indication: IMMUNISATION
     Dosage: 1 DF
     Route: 065
     Dates: start: 20161104, end: 20161104

REACTIONS (3)
  - Nasopharyngitis [Unknown]
  - Oropharyngeal pain [Unknown]
  - Throat tightness [Unknown]

NARRATIVE: CASE EVENT DATE: 20161106
